FAERS Safety Report 12456916 (Version 7)
Quarter: 2018Q2

REPORT INFORMATION
  Report Type: Spontaneous
  Country: IT (occurrence: IT)
  Receive Date: 20160610
  Receipt Date: 20180406
  Transmission Date: 20180711
  Serious: Yes (Other)
  Sender: FDA-Public Use
  Company Number: IT-PFIZER INC-2016294314

PATIENT
  Age: 72 Year
  Sex: Female

DRUGS (4)
  1. CEFOTAXIME [Suspect]
     Active Substance: CEFOTAXIME SODIUM
     Indication: HYSTERECTOMY
     Dosage: 500 MG, SINGLE
     Route: 008
  2. ESOMEPRAZOLE SODIUM. [Suspect]
     Active Substance: ESOMEPRAZOLE SODIUM
     Indication: HYSTERECTOMY
     Dosage: 40 MG, SINGLE
     Route: 008
  3. KETOROLAC [Suspect]
     Active Substance: KETOROLAC\KETOROLAC TROMETHAMINE
     Indication: HYSTERECTOMY
     Dosage: 30 MG, SINGLE
     Route: 008
  4. SODIUM CHLORIDE 0.9% [Suspect]
     Active Substance: SODIUM CHLORIDE
     Indication: HYSTERECTOMY
     Dosage: 100 ML, SINGLE
     Route: 008

REACTIONS (4)
  - Back pain [Recovered/Resolved]
  - Incorrect route of drug administration [Unknown]
  - Oedema peripheral [Recovered/Resolved]
  - Hypertension [Recovered/Resolved]
